FAERS Safety Report 16979210 (Version 2)
Quarter: 2019Q4

REPORT INFORMATION
  Report Type: Spontaneous
  Country: US (occurrence: US)
  Receive Date: 20191031
  Receipt Date: 20191206
  Transmission Date: 20200122
  Serious: Yes (Life-Threatening)
  Sender: FDA-Public Use
  Company Number: US-IPSEN BIOPHARMACEUTICALS, INC.-2019-19341

PATIENT
  Age: 52 Year
  Sex: Female
  Weight: 66.3 kg

DRUGS (14)
  1. ESTRADIOL. [Concomitant]
     Active Substance: ESTRADIOL
  2. ONE TOUCH TES [Concomitant]
  3. FLUOXETINE [Concomitant]
     Active Substance: FLUOXETINE HYDROCHLORIDE
  4. AMOXICILLIN. [Concomitant]
     Active Substance: AMOXICILLIN
  5. GABAPENTIN. [Concomitant]
     Active Substance: GABAPENTIN
  6. RANITIDINE. [Concomitant]
     Active Substance: RANITIDINE
     Indication: GASTROOESOPHAGEAL REFLUX DISEASE
     Dosage: 300 MG
  7. VICTOZA [Concomitant]
     Active Substance: LIRAGLUTIDE
     Indication: DIABETES MELLITUS
  8. SOMATULINE DEPOT [Suspect]
     Active Substance: LANREOTIDE ACETATE
     Indication: ACROMEGALY
     Route: 058
     Dates: start: 20180116
  9. BUPROPION HCL [Concomitant]
     Active Substance: BUPROPION HYDROCHLORIDE
  10. OXYCODO/APAP [Concomitant]
  11. ATORVASTATIN [Concomitant]
     Active Substance: ATORVASTATIN
     Indication: BLOOD CHOLESTEROL
     Dosage: 40 G
  12. LEVOTHYROXIN [Concomitant]
     Active Substance: LEVOTHYROXINE
  13. BASAGLAR [Concomitant]
     Active Substance: INSULIN GLARGINE
  14. DEXAMETHASONE. [Concomitant]
     Active Substance: DEXAMETHASONE

REACTIONS (4)
  - Abdominal pain upper [Unknown]
  - Diarrhoea [Unknown]
  - Ovarian cancer [Not Recovered/Not Resolved]
  - Off label use [Unknown]

NARRATIVE: CASE EVENT DATE: 201906
